FAERS Safety Report 18236076 (Version 3)
Quarter: 2020Q4

REPORT INFORMATION
  Report Type: Report from Study
  Country: US (occurrence: US)
  Receive Date: 20200906
  Receipt Date: 20201119
  Transmission Date: 20210113
  Serious: No
  Sender: FDA-Public Use
  Company Number: US-SA-2020SA239530

PATIENT

DRUGS (1)
  1. TERIFLUNOMIDE. [Suspect]
     Active Substance: TERIFLUNOMIDE
     Indication: MULTIPLE SCLEROSIS
     Dosage: 14 MG, QD
     Route: 048
     Dates: start: 20200410

REACTIONS (7)
  - Pain [Unknown]
  - Sensory disturbance [Unknown]
  - Fatigue [Unknown]
  - Throat clearing [Not Recovered/Not Resolved]
  - Muscle spasticity [Unknown]
  - Musculoskeletal stiffness [Unknown]
  - Fall [Not Recovered/Not Resolved]

NARRATIVE: CASE EVENT DATE: 2020
